FAERS Safety Report 12923061 (Version 3)
Quarter: 2017Q1

REPORT INFORMATION
  Report Type: Spontaneous
  Country: US (occurrence: US)
  Receive Date: 20161108
  Receipt Date: 20170123
  Transmission Date: 20170428
  Serious: No
  Sender: FDA-Public Use
  Company Number: US-PFIZER INC-2016518613

PATIENT
  Age: 41 Year
  Sex: Female

DRUGS (4)
  1. PREDNISONE. [Concomitant]
     Active Substance: PREDNISONE
     Indication: JUVENILE IDIOPATHIC ARTHRITIS
     Dosage: 20 MG, 1X/DAY
  2. XELJANZ [Suspect]
     Active Substance: TOFACITINIB CITRATE
     Indication: RHEUMATOID ARTHRITIS
     Dosage: 5 MG, 2X/DAY
     Route: 048
     Dates: start: 201509, end: 20160920
  3. PANTOPRAZOLE [Concomitant]
     Active Substance: PANTOPRAZOLE SODIUM
     Dosage: 40 MG, 1X/DAY
  4. MS CONTIN [Concomitant]
     Active Substance: MORPHINE SULFATE
     Indication: JUVENILE IDIOPATHIC ARTHRITIS
     Dosage: 30 MG, 3X/DAY

REACTIONS (5)
  - Tremor [Recovered/Resolved]
  - Fatigue [Unknown]
  - Dizziness [Recovered/Resolved]
  - Nausea [Recovered/Resolved]
  - Hyperhidrosis [Unknown]

NARRATIVE: CASE EVENT DATE: 20160910
